FAERS Safety Report 26202581 (Version 1)
Quarter: 2025Q4

REPORT INFORMATION
  Report Type: Spontaneous
  Country: TR (occurrence: None)
  Receive Date: 20251226
  Receipt Date: 20251226
  Transmission Date: 20260118
  Serious: Yes (Other)
  Sender: UCB
  Company Number: TR-UCBSA-2025081498

PATIENT
  Age: 29 Year

DRUGS (9)
  1. LEVETIRACETAM [Suspect]
     Active Substance: LEVETIRACETAM
     Indication: Seizure
     Dosage: 3000 MILLIGRAM/DAY
  2. LACOSAMIDE [Suspect]
     Active Substance: LACOSAMIDE
     Indication: Seizure
  3. LAMOTRIGINE [Suspect]
     Active Substance: LAMOTRIGINE
     Indication: Seizure
  4. TOPIRAMATE [Suspect]
     Active Substance: TOPIRAMATE
     Indication: Seizure
  5. CLONAZEPAM [Suspect]
     Active Substance: CLONAZEPAM
     Indication: Seizure
     Dosage: TAPERED AND DISCONTINUED
  6. VALPROIC ACID [Suspect]
     Active Substance: VALPROIC ACID
     Indication: Seizure
     Dosage: TAPERED AND  DISCONTINUED
  7. PERAMPANEL [Concomitant]
     Active Substance: PERAMPANEL
     Indication: Seizure
     Dosage: UNK
  8. PERAMPANEL [Concomitant]
     Active Substance: PERAMPANEL
     Dosage: 10 MILLIGRAM/DAY
  9. CARBAMAZEPINE [Concomitant]
     Active Substance: CARBAMAZEPINE
     Indication: Seizure
     Dosage: 800 MG/DAY

REACTIONS (2)
  - Seizure [Recovering/Resolving]
  - Multiple-drug resistance [Unknown]
